FAERS Safety Report 18360416 (Version 1)
Quarter: 2020Q4

REPORT INFORMATION
  Report Type: Spontaneous
  Country: US (occurrence: US)
  Receive Date: 20201008
  Receipt Date: 20201008
  Transmission Date: 20210114
  Serious: Yes (Other)
  Sender: FDA-Public Use
  Company Number: None

PATIENT
  Age: 48 Year
  Sex: Female
  Weight: 49.5 kg

DRUGS (6)
  1. CALCIUM/MAGNESIUM CITRATE [Concomitant]
  2. OMEGA OILS [Concomitant]
  3. SEPTOCAINE [Suspect]
     Active Substance: ARTICAINE HYDROCHLORIDE\EPINEPHRINE BITARTRATE
     Indication: DENTAL OPERATION
     Route: 058
     Dates: start: 20200922, end: 20200922
  4. DAILY MULTIVITAMIN [Concomitant]
     Active Substance: VITAMINS
  5. TRIAMCINOLONE ACETONIDE. [Concomitant]
     Active Substance: TRIAMCINOLONE ACETONIDE
  6. HYALURONIC ACID/COLLAGEN [Concomitant]

REACTIONS (5)
  - Migraine [None]
  - Head discomfort [None]
  - Headache [None]
  - Somnolence [None]
  - Photophobia [None]

NARRATIVE: CASE EVENT DATE: 20200922
